FAERS Safety Report 7713989-X (Version None)
Quarter: 2011Q3

REPORT INFORMATION
  Report Type: 
  Country: None (occurrence: None)
  Receive Date: 20110826
  Receipt Date: 20110816
  Transmission Date: 20111222
  Serious: Yes (Hospitalization)
  Sender: FDA-Public Use
  Company Number: FR-MERCK-1009FRA00049

PATIENT
  Age: 72 Year
  Sex: Male
  Weight: 67 kg

DRUGS (25)
  1. ATORVASTATIN CALCIUM [Concomitant]
     Indication: HYPERCHOLESTEROLAEMIA
     Route: 065
     Dates: start: 20100924
  2. FERROUS FUMARATE [Concomitant]
     Indication: ANAEMIA
     Route: 048
     Dates: start: 20101110, end: 20101220
  3. SOTALOL HYDROCHLORIDE [Concomitant]
     Indication: PAROXYSMAL ARRHYTHMIA
     Route: 048
     Dates: start: 20020730
  4. MARAVIROC [Concomitant]
     Route: 048
     Dates: start: 20100713
  5. EMTRICITABINE AND TENOFOVIR DISOPROXIL FUMARATE [Concomitant]
     Route: 048
     Dates: start: 20100713
  6. OXAZEPAM [Concomitant]
     Indication: INSOMNIA
     Route: 065
     Dates: start: 20091127, end: 20110723
  7. IRON SUCROSE [Concomitant]
     Indication: ANAEMIA
     Route: 048
     Dates: start: 20101220, end: 20101220
  8. PREGABALIN [Concomitant]
     Indication: PAIN IN EXTREMITY
     Route: 048
     Dates: start: 20110530
  9. CHOLECALCIFEROL [Concomitant]
     Indication: VITAMIN D DEFICIENCY
     Route: 048
     Dates: start: 20100713, end: 20110723
  10. AMLODIPINE BESYLATE [Concomitant]
     Indication: HYPERTENSION
     Route: 048
     Dates: start: 20070511, end: 20110723
  11. GLYCERIN AND MINERAL OIL AND PETROLATUM, WHITE [Concomitant]
     Indication: DRY SKIN
     Route: 061
     Dates: start: 20091217, end: 20110723
  12. FOLIC ACID [Concomitant]
     Indication: ANAEMIA
     Route: 048
     Dates: start: 20101110, end: 20101220
  13. CLOPIDOGREL BISULFATE [Concomitant]
     Indication: ANTITHROMBIN III
     Route: 048
     Dates: start: 20090629, end: 20110723
  14. ISENTRESS [Suspect]
     Indication: HIV INFECTION
     Route: 048
     Dates: start: 20100713
  15. CLONAZEPAM [Concomitant]
     Indication: RESTLESS LEGS SYNDROME
     Route: 048
     Dates: start: 19990208
  16. ESOMEPRAZOLE MAGNESIUM [Concomitant]
     Indication: GASTROOESOPHAGEAL REFLUX DISEASE
     Route: 065
     Dates: start: 20100924
  17. ACETAMINOPHEN AND TRAMADOL HYDROCHLORIDE [Concomitant]
     Indication: PAIN IN EXTREMITY
     Route: 048
     Dates: start: 20110708
  18. ESCITALOPRAM OXALATE [Concomitant]
     Indication: DEPRESSION
     Route: 048
     Dates: start: 20091217
  19. NIAOULI OIL AND QUININE BENZOATE AND THIAMINE HYDROCHLORIDE [Concomitant]
     Indication: MUSCLE SPASMS
     Route: 065
     Dates: start: 20100924
  20. FIG AND PLUM [Concomitant]
     Indication: CONSTIPATION
     Route: 048
     Dates: start: 20101110, end: 20101220
  21. ASPIRIN LYSINE [Concomitant]
     Indication: THROMBOSIS
     Route: 048
     Dates: start: 20101128, end: 20101220
  22. ROSUVASTATIN CALCIUM [Concomitant]
     Indication: HYPERCHOLESTEROLAEMIA
     Route: 048
     Dates: start: 20090622, end: 20100924
  23. TRAMADOL HYDROCHLORIDE [Concomitant]
     Indication: GAIT DISTURBANCE
     Route: 048
     Dates: start: 20100614, end: 20110723
  24. POTASSIUM CHLORIDE [Concomitant]
     Indication: HYPOKALAEMIA
     Route: 065
     Dates: start: 20100924
  25. POTASSIUM BITARTRATE AND SODIUM BICARBONATE [Concomitant]
     Indication: CONSTIPATION
     Route: 048
     Dates: start: 20101110, end: 20101220

REACTIONS (1)
  - CEREBROVASCULAR ACCIDENT [None]
